FAERS Safety Report 15865502 (Version 4)
Quarter: 2019Q1

REPORT INFORMATION
  Report Type: Report from Study
  Country: US (occurrence: US)
  Receive Date: 20190125
  Receipt Date: 20190219
  Transmission Date: 20190417
  Serious: Yes (Hospitalization, Other)
  Sender: FDA-Public Use
  Company Number: US-BRISTOL-MYERS SQUIBB COMPANY-BMS-2019-000491

PATIENT
  Age: 45 Year
  Sex: Female
  Weight: 100.9 kg

DRUGS (4)
  1. ENTINOSTAT [Suspect]
     Active Substance: ENTINOSTAT
     Indication: PRODUCT USED FOR UNKNOWN INDICATION
     Dosage: 3 MG, UNK
     Route: 048
     Dates: start: 20181120, end: 20181219
  2. NIVOLUMAB [Suspect]
     Active Substance: NIVOLUMAB
     Indication: BREAST CANCER
     Dosage: 296 MG, UNK
     Route: 042
     Dates: start: 20181120, end: 20181219
  3. ENTINOSTAT [Suspect]
     Active Substance: ENTINOSTAT
     Indication: BREAST CANCER
     Dosage: UNK
     Route: 048
     Dates: start: 20181107
  4. IPILIMUMAB [Suspect]
     Active Substance: IPILIMUMAB
     Indication: BREAST CANCER
     Dosage: 99 MG, UNK
     Route: 042
     Dates: start: 20181120, end: 20181120

REACTIONS (3)
  - Sepsis [Not Recovered/Not Resolved]
  - Pleural effusion [Recovering/Resolving]
  - Deep vein thrombosis [Recovering/Resolving]

NARRATIVE: CASE EVENT DATE: 20181231
